FAERS Safety Report 4454021-3 (Version None)
Quarter: 2004Q3

REPORT INFORMATION
  Report Type: 
  Country: None (occurrence: None)
  Receive Date: 20040920
  Receipt Date: 20040826
  Transmission Date: 20050211
  Serious: Yes (Hospitalization)
  Sender: FDA-Public Use
  Company Number: GB-BRISTOL-MYERS SQUIBB COMPANY-12688826

PATIENT
  Age: 78 Year
  Sex: Male
  Weight: 85 kg

DRUGS (6)
  1. CETUXIMAB [Suspect]
     Indication: COLORECTAL CANCER
     Dosage: DELAYED AT ONSET OF SAE THEN DISCONTINUED. LOT #70170, 00538, 010216.
     Route: 041
     Dates: start: 20040716, end: 20040901
  2. IRINOTECAN [Suspect]
     Indication: COLORECTAL CANCER
     Dosage: DOSE DELAYED AT ONSET OF SAE THEN DISCONTINUED.
     Route: 042
     Dates: start: 20040716, end: 20040901
  3. CLORIMIPRAMINE [Concomitant]
     Dates: start: 20040723
  4. LANSOPRAZOLE [Concomitant]
     Dates: start: 20031111
  5. ONDANSETRON [Concomitant]
     Dates: start: 20040716
  6. TRAMADOL HCL [Concomitant]
     Dates: start: 20031111

REACTIONS (4)
  - ASCITES [None]
  - GASTRIC ULCER [None]
  - HAEMATEMESIS [None]
  - MELAENA [None]
